FAERS Safety Report 26134370 (Version 1)
Quarter: 2025Q4

REPORT INFORMATION
  Report Type: Spontaneous
  Country: US (occurrence: US)
  Receive Date: 20251209
  Receipt Date: 20251209
  Transmission Date: 20260118
  Serious: No
  Sender: AUROBINDO
  Company Number: US-AUROBINDO-AUR-APL-2025-023692

PATIENT
  Age: 49 Year
  Sex: Female
  Weight: 162 kg

DRUGS (2)
  1. GUAIFENESIN [Suspect]
     Active Substance: GUAIFENESIN
     Indication: Productive cough
     Dosage: UNK , AS DIRECTED (TOOK THE MEDICATION AS DIRECTED IN PACKAGE INSERT)
     Route: 065
  2. GUAIFENESIN [Suspect]
     Active Substance: GUAIFENESIN
     Indication: Illness

REACTIONS (3)
  - Hepatic pain [Recovered/Resolved]
  - Renal pain [Recovered/Resolved]
  - Drug ineffective [Unknown]
